FAERS Safety Report 17180826 (Version 1)
Quarter: 2019Q4

REPORT INFORMATION
  Report Type: Spontaneous
  Country: US (occurrence: US)
  Receive Date: 20191219
  Receipt Date: 20191219
  Transmission Date: 20200122
  Serious: Yes (Other)
  Sender: FDA-Public Use
  Company Number: US-HONG KONG KING-FRIEND INDUSTRIAL COMPANY-2019NKF00038

PATIENT
  Age: 56 Year
  Sex: Male

DRUGS (2)
  1. HEPARIN SODIUM. [Suspect]
     Active Substance: HEPARIN SODIUM
  2. DUAL ANTIPLATELET THERAPY [Concomitant]
     Route: 065

REACTIONS (5)
  - Renal impairment [Not Recovered/Not Resolved]
  - Acute pulmonary oedema [Not Recovered/Not Resolved]
  - Gastrointestinal haemorrhage [Unknown]
  - Heparin-induced thrombocytopenia [Unknown]
  - Renal artery thrombosis [Unknown]
